FAERS Safety Report 5266485-6 (Version None)
Quarter: 2007Q1

REPORT INFORMATION
  Report Type: 
  Country: None (occurrence: None)
  Receive Date: 20070315
  Receipt Date: 20070312
  Transmission Date: 20070707
  Serious: Yes (Other)
  Sender: FDA-Public Use
  Company Number: GB-BRISTOL-MYERS SQUIBB COMPANY-13711254

PATIENT
  Age: 57 Year
  Sex: Male

DRUGS (1)
  1. MITOMYCIN [Suspect]
     Route: 061

REACTIONS (1)
  - LARYNGEAL CANCER [None]
